FAERS Safety Report 20036436 (Version 3)
Quarter: 2021Q4

REPORT INFORMATION
  Report Type: Report from Study
  Country: US (occurrence: US)
  Receive Date: 20211105
  Receipt Date: 20211221
  Transmission Date: 20220303
  Serious: No
  Sender: FDA-Public Use
  Company Number: US-BIOVITRUM-2021US7486

PATIENT
  Age: 1 Year
  Sex: Female

DRUGS (8)
  1. KINERET [Suspect]
     Active Substance: ANAKINRA
     Indication: Kawasaki^s disease
     Route: 058
     Dates: start: 20210721
  2. KINERET [Suspect]
     Active Substance: ANAKINRA
     Route: 058
  3. KINERET [Suspect]
     Active Substance: ANAKINRA
     Route: 058
     Dates: start: 20210812
  4. PREDNISOLONE [Concomitant]
     Active Substance: PREDNISOLONE
  5. PEPCID [Concomitant]
     Active Substance: FAMOTIDINE
  6. ASPIRIN [Concomitant]
     Active Substance: ASPIRIN
  7. LOVENOX [Concomitant]
     Active Substance: ENOXAPARIN SODIUM
  8. ENALAPRIL [Concomitant]
     Active Substance: ENALAPRIL

REACTIONS (11)
  - Aneurysm [Unknown]
  - Inflammation [Recovered/Resolved]
  - Pain in extremity [Unknown]
  - Inflammatory marker decreased [Recovered/Resolved]
  - Decreased appetite [Unknown]
  - Gastroenteritis viral [Unknown]
  - Rash [Not Recovered/Not Resolved]
  - Urticaria [Not Recovered/Not Resolved]
  - Injection site bruising [Recovered/Resolved]
  - Injection site nodule [Recovered/Resolved]
  - Off label use [Unknown]

NARRATIVE: CASE EVENT DATE: 20210812
